FAERS Safety Report 12178579 (Version 2)
Quarter: 2016Q3

REPORT INFORMATION
  Report Type: Report from Study
  Country: BR (occurrence: BR)
  Receive Date: 20160315
  Receipt Date: 20160919
  Transmission Date: 20161109
  Serious: Yes (Other)
  Sender: FDA-Public Use
  Company Number: BR-ROCHE-1725818

PATIENT
  Sex: Female
  Weight: 57 kg

DRUGS (3)
  1. CAPTOPRIL. [Concomitant]
     Active Substance: CAPTOPRIL
     Route: 065
  2. SELOZOK [Concomitant]
     Active Substance: METOPROLOL SUCCINATE
     Route: 065
  3. ACTEMRA [Suspect]
     Active Substance: TOCILIZUMAB
     Indication: RHEUMATOID ARTHRITIS
     Dosage: LATEST INFUSION OF TOCILIZUMAB WAS ON 01/JUN/2016.
     Route: 042
     Dates: start: 20130920

REACTIONS (4)
  - Visual impairment [Unknown]
  - Joint swelling [Unknown]
  - Hypoacusis [Unknown]
  - Blood pressure inadequately controlled [Unknown]
